FAERS Safety Report 9697379 (Version 1)
Quarter: 2013Q4

REPORT INFORMATION
  Report Type: Spontaneous
  Country: US (occurrence: None)
  Receive Date: 20131119
  Receipt Date: 20131119
  Transmission Date: 20140711
  Serious: Yes (Hospitalization)
  Sender: FDA-Public Use
  Company Number: None

PATIENT
  Age: 74 Year
  Sex: Male

DRUGS (1)
  1. DECITABINE [Suspect]
     Indication: ACUTE MYELOID LEUKAEMIA
     Dosage: 20MG/M2; QDX10; 28DAY CYCLE
     Dates: start: 20130702, end: 20130905

REACTIONS (3)
  - Febrile neutropenia [None]
  - Staphylococcal bacteraemia [None]
  - Device related infection [None]
